FAERS Safety Report 12007656 (Version 1)
Quarter: 2016Q1

REPORT INFORMATION
  Report Type: Spontaneous
  Country: US (occurrence: US)
  Receive Date: 20160204
  Receipt Date: 20160204
  Transmission Date: 20160526
  Serious: Yes (Hospitalization)
  Sender: FDA-Public Use
  Company Number: US-SMITH AND NEPHEW, INC-2016SMT00086

PATIENT
  Age: 76 Year
  Sex: Male
  Weight: 81.63 kg

DRUGS (1)
  1. REGRANEX [Suspect]
     Active Substance: BECAPLERMIN
     Indication: WOUND
     Dosage: UNK, EVERY 48 HOURS
     Route: 061
     Dates: start: 201601

REACTIONS (3)
  - Inappropriate schedule of drug administration [Unknown]
  - Feeling hot [Unknown]
  - Osteomyelitis [Unknown]

NARRATIVE: CASE EVENT DATE: 201601
